FAERS Safety Report 4827902-6 (Version None)
Quarter: 2005Q4

REPORT INFORMATION
  Report Type: 
  Country: None (occurrence: None)
  Receive Date: 20051114
  Receipt Date: 20051114
  Transmission Date: 20060501
  Serious: No
  Sender: FDA-Public Use
  Company Number: None

PATIENT
  Sex: Female

DRUGS (1)
  1. ANALPRAM HC 2.5% CRCAN FERNDOLE LABS [Suspect]
     Indication: HAEMORRHOIDS
     Dosage: APPLY 2X /DAY TOPICALLY TO REACAL
     Route: 061
     Dates: start: 20050101, end: 20051101

REACTIONS (1)
  - PHARMACEUTICAL PRODUCT COMPLAINT [None]
